FAERS Safety Report 22381679 (Version 1)
Quarter: 2023Q2

REPORT INFORMATION
  Report Type: Spontaneous
  Country: US (occurrence: US)
  Receive Date: 20230530
  Receipt Date: 20230530
  Transmission Date: 20230721
  Serious: No
  Sender: FDA-Public Use
  Company Number: US-STRIDES ARCOLAB LIMITED-2023SP003767

PATIENT
  Age: 69 Year
  Sex: Female

DRUGS (5)
  1. PREDNISOLONE [Suspect]
     Active Substance: PREDNISOLONE
     Indication: Warm autoimmune haemolytic anaemia
     Dosage: 60 MILLIGRAM; PER DAY
     Route: 065
  2. PREDNISOLONE [Suspect]
     Active Substance: PREDNISOLONE
     Dosage: 20 MILLIGRAM; PER DAY
     Route: 065
  3. PREDNISOLONE [Suspect]
     Active Substance: PREDNISOLONE
     Dosage: 5 MILLIGRAM; PER DAY
     Route: 065
  4. MYCOPHENOLATE MOFETIL [Suspect]
     Active Substance: MYCOPHENOLATE MOFETIL
     Indication: Warm autoimmune haemolytic anaemia
     Dosage: 1000 MILLIGRAM, BID
     Route: 065
  5. FOLATE SODIUM [Concomitant]
     Active Substance: FOLATE SODIUM
     Indication: Nutritional supplementation
     Dosage: 1 MILLIGRAM; PER DAY
     Route: 065

REACTIONS (2)
  - Nausea [Unknown]
  - Off label use [Unknown]
